FAERS Safety Report 11080112 (Version 2)
Quarter: 2015Q4

REPORT INFORMATION
  Report Type: Spontaneous
  Country: FR (occurrence: FR)
  Receive Date: 20150430
  Receipt Date: 20151223
  Transmission Date: 20160304
  Serious: Yes (Other)
  Sender: FDA-Public Use
  Company Number: PHHY2015FR050340

PATIENT
  Age: 58 Year
  Sex: Male

DRUGS (1)
  1. OFLOXACINE [Suspect]
     Active Substance: OFLOXACIN
     Indication: OTITIS EXTERNA
     Dosage: 200 MG, UNK
     Route: 065

REACTIONS (3)
  - Tendon pain [Recovering/Resolving]
  - Pain [Recovering/Resolving]
  - Tendon disorder [Recovering/Resolving]
